FAERS Safety Report 19242268 (Version 2)
Quarter: 2021Q2

REPORT INFORMATION
  Report Type: Report from Study
  Country: FR (occurrence: FR)
  Receive Date: 20210511
  Receipt Date: 20210513
  Transmission Date: 20210717
  Serious: Yes (Death, Hospitalization)
  Sender: FDA-Public Use
  Company Number: FR-JNJFOC-20210512179

PATIENT
  Age: 82 Year
  Sex: Female

DRUGS (6)
  1. DEXAMETHASONE. [Suspect]
     Active Substance: DEXAMETHASONE
     Indication: PLASMA CELL MYELOMA
     Route: 048
     Dates: start: 20210331, end: 20210407
  2. METHOTREXATE. [Concomitant]
     Active Substance: METHOTREXATE
  3. CORTANCYL [Concomitant]
     Active Substance: PREDNISONE
     Indication: PLASMA CELL MYELOMA
  4. DARATUMUMAB [Suspect]
     Active Substance: DARATUMUMAB
     Indication: PLASMA CELL MYELOMA
     Dosage: DAY 1
     Route: 058
     Dates: start: 20210331, end: 20210331
  5. LENALIDOMIDE [Suspect]
     Active Substance: LENALIDOMIDE
     Indication: PLASMA CELL MYELOMA
     Route: 048
     Dates: start: 20210331
  6. DARATUMUMAB [Suspect]
     Active Substance: DARATUMUMAB
     Dosage: DAY 8
     Route: 058
     Dates: start: 20210407, end: 20210407

REACTIONS (3)
  - Shock [Fatal]
  - Loss of consciousness [Fatal]
  - Coma [Fatal]

NARRATIVE: CASE EVENT DATE: 20210413
